FAERS Safety Report 9656672 (Version 3)
Quarter: 2013Q4

REPORT INFORMATION
  Report Type: Report from Study
  Country: US (occurrence: US)
  Receive Date: 20131030
  Receipt Date: 20131216
  Transmission Date: 20140711
  Serious: Yes (Death, Other)
  Sender: FDA-Public Use
  Company Number: US-PFIZER INC-2011314897

PATIENT
  Age: 51 Year
  Sex: Male
  Weight: 155 kg

DRUGS (2)
  1. SUTENT [Suspect]
     Indication: METASTATIC RENAL CELL CARCINOMA
     Dosage: 50 MG, CYCLIC (1 CAPSULE DAILY FOR 28 DAYS ON AND TWO WEEKS OFF, EVERY 42 DAYS)
     Route: 048
     Dates: start: 201111
  2. SUTENT [Suspect]
     Dosage: 37.5 MG, UNK (12.5MG AND 25MG)
     Dates: start: 20130109

REACTIONS (17)
  - Small intestinal obstruction [Fatal]
  - Haemorrhage [Not Recovered/Not Resolved]
  - Nausea [Not Recovered/Not Resolved]
  - Diarrhoea [Not Recovered/Not Resolved]
  - Fatigue [Not Recovered/Not Resolved]
  - Somnolence [Unknown]
  - Dysgeusia [Unknown]
  - Decreased appetite [Unknown]
  - Rash [Not Recovered/Not Resolved]
  - Oral pain [Not Recovered/Not Resolved]
  - Viral infection [Recovered/Resolved]
  - Vomiting [Recovered/Resolved]
  - Visual impairment [Not Recovered/Not Resolved]
  - Asthenia [Unknown]
  - Feeling hot [Unknown]
  - Pruritus [Unknown]
  - Rash [Unknown]
